FAERS Safety Report 16186453 (Version 3)
Quarter: 2019Q2

REPORT INFORMATION
  Report Type: Report from Study
  Country: US (occurrence: US)
  Receive Date: 20190411
  Receipt Date: 20190515
  Transmission Date: 20190711
  Serious: Yes (Hospitalization, Other)
  Sender: FDA-Public Use
  Company Number: US-BAYER-2019-069441

PATIENT
  Age: 62 Year
  Sex: Female

DRUGS (1)
  1. STIVARGA [Suspect]
     Active Substance: REGORAFENIB
     Indication: COLORECTAL CANCER
     Dosage: 160 MG DAILY FOR 21 DAYS ON THEN 7 DAYS OFF
     Route: 048
     Dates: start: 20190206

REACTIONS (19)
  - Peripheral coldness [Recovering/Resolving]
  - Hypertension [None]
  - Fatigue [Not Recovered/Not Resolved]
  - Appetite disorder [None]
  - Asthenia [Not Recovered/Not Resolved]
  - Decreased appetite [Recovering/Resolving]
  - Vomiting [None]
  - Dysphonia [None]
  - Blood potassium decreased [None]
  - Visual impairment [None]
  - Nausea [None]
  - Dehydration [None]
  - Stomatitis [Not Recovered/Not Resolved]
  - Pain in extremity [None]
  - Product dose omission [None]
  - Neuropathy peripheral [Not Recovered/Not Resolved]
  - Neuropathy peripheral [Recovering/Resolving]
  - Diarrhoea [None]
  - Palmar erythema [Not Recovered/Not Resolved]

NARRATIVE: CASE EVENT DATE: 2019
